FAERS Safety Report 13402170 (Version 2)
Quarter: 2017Q2

REPORT INFORMATION
  Report Type: Spontaneous
  Country: US (occurrence: US)
  Receive Date: 20170404
  Receipt Date: 20170518
  Transmission Date: 20170830
  Serious: Yes (Hospitalization)
  Sender: FDA-Public Use
  Company Number: US-PFIZER INC-2017141435

PATIENT
  Age: 68 Year
  Sex: Male
  Weight: 73 kg

DRUGS (1)
  1. LYRICA [Suspect]
     Active Substance: PREGABALIN
     Indication: NERVE INJURY
     Dosage: 300 MG, 2X/DAY
     Route: 048
     Dates: start: 2014

REACTIONS (3)
  - Infection [Unknown]
  - Product use in unapproved indication [Unknown]
  - Complication associated with device [Unknown]

NARRATIVE: CASE EVENT DATE: 2014
